FAERS Safety Report 13820148 (Version 1)
Quarter: 2017Q3

REPORT INFORMATION
  Report Type: Other
  Country: NL (occurrence: NL)
  Receive Date: 20170801
  Receipt Date: 20170801
  Transmission Date: 20171127
  Serious: Yes (Death, Other)
  Sender: FDA-Public Use
  Company Number: NL-ACTELION-A-CH2017-157364

PATIENT

DRUGS (3)
  1. TREPROSTINIL [Concomitant]
     Active Substance: TREPROSTINIL
  2. SILDENAFIL. [Concomitant]
     Active Substance: SILDENAFIL
  3. BOSENTAN. [Suspect]
     Active Substance: BOSENTAN
     Indication: PULMONARY ARTERIAL HYPERTENSION
     Route: 048

REACTIONS (3)
  - Disease progression [Not Recovered/Not Resolved]
  - Cardiac failure [Fatal]
  - Pulmonary arterial hypertension [Not Recovered/Not Resolved]
